FAERS Safety Report 14712120 (Version 1)
Quarter: 2018Q2

REPORT INFORMATION
  Report Type: Spontaneous
  Country: US (occurrence: US)
  Receive Date: 20180404
  Receipt Date: 20180404
  Transmission Date: 20180711
  Serious: No
  Sender: FDA-Public Use
  Company Number: US-SA-2017SA067419

PATIENT
  Age: 73 Year
  Sex: Male

DRUGS (1)
  1. ALLEGRA-D 24 HOUR [Suspect]
     Active Substance: FEXOFENADINE HYDROCHLORIDE\PSEUDOEPHEDRINE HYDROCHLORIDE
     Indication: HYPERSENSITIVITY
     Dosage: DOSAGE 180/240 MG
     Route: 065

REACTIONS (4)
  - Erectile dysfunction [Unknown]
  - Micturition urgency [Unknown]
  - Urinary incontinence [Unknown]
  - Prostatic disorder [Unknown]
